FAERS Safety Report 19905946 (Version 1)
Quarter: 2021Q4

REPORT INFORMATION
  Report Type: Spontaneous
  Country: US (occurrence: US)
  Receive Date: 20211001
  Receipt Date: 20211001
  Transmission Date: 20220303
  Serious: Yes (Death, Other)
  Sender: FDA-Public Use
  Company Number: US-VELOXIS PHARMACEUTICALS-2021VELUS-000681

PATIENT
  Age: 63 Year
  Sex: Female

DRUGS (2)
  1. ENVARSUS XR [Suspect]
     Active Substance: TACROLIMUS
     Indication: Product used for unknown indication
     Dosage: 6 MILLIGRAM, QD (STRENGTH 1 MG)
     Route: 065
     Dates: start: 201909
  2. ENVARSUS XR [Suspect]
     Active Substance: TACROLIMUS
     Dosage: 6 MILLIGRAM, QD (STRENGTH 4 MG)
     Route: 065
     Dates: start: 201909

REACTIONS (1)
  - Death [Fatal]

NARRATIVE: CASE EVENT DATE: 20210907
